FAERS Safety Report 8994993 (Version 2)
Quarter: 2013Q3

REPORT INFORMATION
  Report Type: Spontaneous
  Country: DK (occurrence: DK)
  Receive Date: 20130102
  Receipt Date: 20130925
  Transmission Date: 20140515
  Serious: Yes (Other)
  Sender: FDA-Public Use
  Company Number: DK-PFIZER INC-2012333710

PATIENT
  Age: 51 Year
  Sex: Female

DRUGS (3)
  1. SALAZOPYRIN EN-TABS [Suspect]
     Indication: RHEUMATOID ARTHRITIS
     Dosage: 1000 MG, 2X/DAY (STRENGTH: 500 MG)
     Route: 048
     Dates: start: 20121029, end: 20121126
  2. PANODIL [Concomitant]
     Indication: PAIN
     Dosage: 1330 MG, 3X/DAY (STRENGTH: 665 MG)
     Route: 048
     Dates: start: 20121029
  3. IBUPROFEN [Concomitant]
     Indication: ARTHRALGIA
     Dosage: 600 MG, 1 TABLET AS NEEDED NOT MORE THAN 3X/DAY
     Route: 048
     Dates: start: 20121015

REACTIONS (4)
  - Dyspnoea [Recovered/Resolved]
  - Rash [Recovered/Resolved]
  - Pruritus [Recovered/Resolved]
  - Pyrexia [Recovered/Resolved]
